FAERS Safety Report 8916866 (Version 2)
Quarter: 2012Q4

REPORT INFORMATION
  Report Type: 
  Country: US (occurrence: US)
  Receive Date: 20121120
  Receipt Date: 20121220
  Transmission Date: 20130627
  Serious: No
  Sender: FDA-Public Use
  Company Number: US-PFIZER INC-2012289370

PATIENT
  Sex: Female

DRUGS (2)
  1. LYRICA [Suspect]
     Dosage: 50 mg, 2x/day
  2. LYRICA [Suspect]
     Dosage: 75 mg, 2x/day

REACTIONS (1)
  - Burning sensation [Unknown]
